FAERS Safety Report 15431583 (Version 1)
Quarter: 2018Q4

REPORT INFORMATION
  Report Type: Spontaneous
  Country: US (occurrence: US)
  Receive Date: 20180926
  Receipt Date: 20180926
  Transmission Date: 20190204
  Serious: Yes (Death)
  Sender: FDA-Public Use
  Company Number: US-TAIHO ONCOLOGY  INC-EU-2018-01142

PATIENT
  Sex: Male

DRUGS (11)
  1. LONSURF [Suspect]
     Active Substance: TIPIRACIL HYDROCHLORIDE\TRIFLURIDINE
     Indication: GASTROINTESTINAL CARCINOMA
     Route: 048
     Dates: start: 20171220, end: 2018
  2. CODEINE [Concomitant]
     Active Substance: CODEINE
     Dosage: NI
  3. NIFEDIPINE. [Concomitant]
     Active Substance: NIFEDIPINE
     Dosage: NI
  4. ALOGLIPTIN. [Concomitant]
     Active Substance: ALOGLIPTIN
     Dosage: NI
  5. GABAPENTIN. [Concomitant]
     Active Substance: GABAPENTIN
     Dosage: NI
  6. RANITIDINE. [Concomitant]
     Active Substance: RANITIDINE
     Dosage: NI
  7. ARIPIPRAZOLE. [Concomitant]
     Active Substance: ARIPIPRAZOLE
     Dosage: NI
  8. ENALAPRIL [Concomitant]
     Active Substance: ENALAPRIL
     Dosage: NI
  9. METOPROLOL. [Concomitant]
     Active Substance: METOPROLOL
     Dosage: NI
  10. ASPIRIN LOW DOSE [Concomitant]
     Active Substance: ASPIRIN
     Dosage: NI
  11. POTASSIUM CHLORIDE. [Concomitant]
     Active Substance: POTASSIUM CHLORIDE
     Dosage: NI

REACTIONS (1)
  - Disease progression [Fatal]
